FAERS Safety Report 12685271 (Version 1)
Quarter: 2016Q3

REPORT INFORMATION
  Report Type: Spontaneous
  Country: FR (occurrence: FR)
  Receive Date: 20160825
  Receipt Date: 20160825
  Transmission Date: 20161109
  Serious: Yes (Hospitalization)
  Sender: FDA-Public Use
  Company Number: PHHY2016FR113711

PATIENT
  Age: 68 Year
  Sex: Male

DRUGS (5)
  1. RIMIFON [Suspect]
     Active Substance: ISONIAZID
     Indication: DISSEMINATED TUBERCULOSIS
     Dosage: 2 DF, QD
     Route: 048
     Dates: start: 20160718, end: 20160726
  2. RIMACTAN SANDOZ [Suspect]
     Active Substance: RIFAMPIN
     Indication: DISSEMINATED TUBERCULOSIS
     Dosage: 600 MG, QD
     Route: 048
     Dates: start: 20160718, end: 20160727
  3. RIFADINE [Suspect]
     Active Substance: RIFAMPIN
     Indication: DISSEMINATED TUBERCULOSIS
     Dosage: 100 MG, QD
     Route: 048
     Dates: start: 20160718, end: 20160726
  4. PIRILENE [Suspect]
     Active Substance: PYRAZINAMIDE
     Indication: DISSEMINATED TUBERCULOSIS
     Dosage: 3 DF, QD
     Route: 048
     Dates: start: 20160718, end: 20160726
  5. ETHAMBUTOL [Suspect]
     Active Substance: ETHAMBUTOL HYDROCHLORIDE
     Indication: DISSEMINATED TUBERCULOSIS
     Dosage: 2 DF, QD
     Route: 048
     Dates: start: 20160718, end: 20160728

REACTIONS (2)
  - Hepatocellular injury [Recovering/Resolving]
  - Vomiting [Unknown]

NARRATIVE: CASE EVENT DATE: 20160726
